FAERS Safety Report 5161064-3 (Version None)
Quarter: 2006Q4

REPORT INFORMATION
  Report Type: 
  Country: None (occurrence: None)
  Receive Date: 20061130
  Receipt Date: 20061121
  Transmission Date: 20070319
  Serious: Yes (Other)
  Sender: FDA-Public Use
  Company Number: US-BRISTOL-MYERS SQUIBB COMPANY-13587449

PATIENT
  Age: 79 Year
  Sex: Male

DRUGS (4)
  1. COUMADIN [Suspect]
     Indication: THROMBOSIS
  2. ALEVE [Suspect]
     Indication: ARTHRALGIA
     Route: 048
  3. ANTIHYPERTENSIVE [Concomitant]
  4. SIMVASTATIN [Concomitant]

REACTIONS (3)
  - BLOOD DISORDER [None]
  - DRUG LEVEL FLUCTUATING [None]
  - THROMBOSIS [None]
